FAERS Safety Report 24637600 (Version 2)
Quarter: 2025Q2

REPORT INFORMATION
  Report Type: Report from Study
  Country: JP (occurrence: JP)
  Receive Date: 20241119
  Receipt Date: 20250620
  Transmission Date: 20250716
  Serious: Yes (Hospitalization)
  Sender: ABBVIE
  Company Number: JP-ABBVIE-5839868

PATIENT
  Age: 67 Year
  Sex: Male

DRUGS (5)
  1. VYALEV [Suspect]
     Active Substance: FOSCARBIDOPA\FOSLEVODOPA
     Indication: Parkinson^s disease
     Route: 058
     Dates: start: 20240524
  2. VYALEV [Suspect]
     Active Substance: FOSCARBIDOPA\FOSLEVODOPA
     Route: 058
     Dates: start: 20240826
  3. VYALEV [Suspect]
     Active Substance: FOSCARBIDOPA\FOSLEVODOPA
     Route: 058
  4. NEUPRO [Suspect]
     Active Substance: ROTIGOTINE
     Indication: Parkinson^s disease
     Route: 062
  5. DOPAMINE [Concomitant]
     Active Substance: DOPAMINE HYDROCHLORIDE
     Indication: Parkinson^s disease
     Route: 048

REACTIONS (8)
  - Infusion site cellulitis [Recovering/Resolving]
  - Infusion site reaction [Unknown]
  - Infusion site induration [Unknown]
  - Infusion site reaction [Unknown]
  - Hallucination [Recovering/Resolving]
  - Parkinson^s disease [Unknown]
  - Product administered at inappropriate site [Unknown]
  - Malaise [Unknown]

NARRATIVE: CASE EVENT DATE: 20240101
